FAERS Safety Report 13303919 (Version 1)
Quarter: 2017Q1

REPORT INFORMATION
  Report Type: Not Available
  Country: IN (occurrence: IN)
  Receive Date: 20170307
  Receipt Date: 20170307
  Transmission Date: 20170428
  Serious: Yes (Other)
  Sender: FDA-Public Use
  Company Number: IN--2017-IN-000028

PATIENT
  Age: 28 Year
  Sex: Female

DRUGS (1)
  1. AMLODIPINE BESYLATE BRAND UNSPECIFIED (VIVIMED) [Suspect]
     Active Substance: AMLODIPINE BESYLATE
     Indication: OVERDOSE
     Dosage: PT TOOK50 TABLETS OF AMLODIPINE 5MG

REACTIONS (3)
  - Pleural effusion [Recovered/Resolved]
  - Overdose [Unknown]
  - Shock [Recovered/Resolved]
